FAERS Safety Report 25203148 (Version 1)
Quarter: 2025Q2

REPORT INFORMATION
  Report Type: Spontaneous
  Country: LT (occurrence: LT)
  Receive Date: 20250416
  Receipt Date: 20250416
  Transmission Date: 20250716
  Serious: Yes (Other)
  Sender: AMGEN
  Company Number: LT-AMGEN-LTUSP2025071677

PATIENT
  Age: 53 Year
  Sex: Male

DRUGS (4)
  1. ADALIMUMAB [Suspect]
     Active Substance: ADALIMUMAB
     Indication: Hidradenitis
     Dosage: 40 MILLIGRAM, QWK
     Route: 065
  2. DOXYCYCLINE [Concomitant]
     Active Substance: DOXYCYCLINE
  3. RIFAMPIN [Concomitant]
     Active Substance: RIFAMPIN
  4. CLINDAMYCIN [Concomitant]
     Active Substance: CLINDAMYCIN

REACTIONS (3)
  - Lung squamous cell carcinoma metastatic [Recovered/Resolved]
  - Hidradenitis [Recovered/Resolved]
  - Acinetobacter test positive [Unknown]

NARRATIVE: CASE EVENT DATE: 20230101
